FAERS Safety Report 16179415 (Version 4)
Quarter: 2020Q2

REPORT INFORMATION
  Report Type: Report from Study
  Country: IL (occurrence: IL)
  Receive Date: 20190410
  Receipt Date: 20200520
  Transmission Date: 20200713
  Serious: Yes (Death, Hospitalization)
  Sender: FDA-Public Use
  Company Number: IL-ACTELION-A-CH2019-188573

PATIENT
  Age: 83 Year
  Sex: Male

DRUGS (10)
  1. SIMVAXON [Concomitant]
  2. CARDILOC [Concomitant]
     Active Substance: BISOPROLOL FUMARATE
  3. OPSUMIT [Suspect]
     Active Substance: MACITENTAN
     Indication: PULMONARY ARTERIAL HYPERTENSION
     Dosage: 10 MG, QD
     Route: 048
     Dates: start: 20180425, end: 20200308
  4. FUSID [Concomitant]
     Dosage: UNK
     Route: 042
  5. ELIQUIS [Concomitant]
     Active Substance: APIXABAN
  6. BETAHISTINE [Concomitant]
     Active Substance: BETAHISTINE
  7. CIPRAMIL [Concomitant]
  8. SPIRONOLACTONE. [Concomitant]
     Active Substance: SPIRONOLACTONE
  9. OMEPRADEX [Concomitant]
     Active Substance: OMEPRAZOLE
  10. CILAZAPRIL [Concomitant]
     Active Substance: CILAZAPRIL ANHYDROUS

REACTIONS (7)
  - Renal failure [Recovering/Resolving]
  - Oliguria [Recovering/Resolving]
  - Oxygen consumption increased [Recovering/Resolving]
  - Urinary tract infection [Fatal]
  - Dyspnoea [Recovering/Resolving]
  - Concomitant disease aggravated [Recovering/Resolving]
  - Oedema peripheral [Recovering/Resolving]

NARRATIVE: CASE EVENT DATE: 201903
